FAERS Safety Report 6585403-1 (Version None)
Quarter: 2010Q1

REPORT INFORMATION
  Report Type: 
  Country: None (occurrence: None)
  Receive Date: 20100217
  Receipt Date: 20100211
  Transmission Date: 20100710
  Serious: Yes (Other)
  Sender: FDA-Public Use
  Company Number: A0844041A

PATIENT
  Age: 38 Year
  Sex: Female

DRUGS (8)
  1. VALTREX [Suspect]
     Dosage: 1G THREE TIMES PER DAY
     Route: 048
     Dates: start: 20090801, end: 20100101
  2. LAMOTRIGINE [Suspect]
     Indication: DRUG USE FOR UNKNOWN INDICATION
     Route: 065
  3. TRAMADOL [Concomitant]
  4. GABAPENTIN [Concomitant]
  5. LYRICA [Concomitant]
  6. ZYPREXA [Concomitant]
  7. VITAMIN B-12 [Concomitant]
  8. VALIUM [Concomitant]

REACTIONS (11)
  - BLISTER [None]
  - CHILLS [None]
  - DRUG INEFFECTIVE [None]
  - HEADACHE [None]
  - HYPOACUSIS [None]
  - MYALGIA [None]
  - PYREXIA [None]
  - RASH [None]
  - SKIN EXFOLIATION [None]
  - URTICARIA [None]
  - VISUAL ACUITY REDUCED [None]
